FAERS Safety Report 25069406 (Version 1)
Quarter: 2025Q1

REPORT INFORMATION
  Report Type: Spontaneous
  Country: CN (occurrence: CN)
  Receive Date: 20250312
  Receipt Date: 20250312
  Transmission Date: 20250409
  Serious: Yes (Life-Threatening, Hospitalization, Other)
  Sender: OXFORD PHARMACEUTICALS, LLC
  Company Number: CN-Oxford Pharmaceuticals, LLC-2172720

PATIENT
  Age: 32 Year
  Sex: Female

DRUGS (1)
  1. AMLODIPINE BESYLATE [Suspect]
     Active Substance: AMLODIPINE BESYLATE
     Indication: Intentional overdose

REACTIONS (3)
  - Cardiogenic shock [Unknown]
  - Intentional overdose [Unknown]
  - Vasoplegia syndrome [Unknown]
